FAERS Safety Report 9773894 (Version 3)
Quarter: 2014Q1

REPORT INFORMATION
  Report Type: Spontaneous
  Country: JP (occurrence: JP)
  Receive Date: 20131220
  Receipt Date: 20140127
  Transmission Date: 20141002
  Serious: Yes (Hospitalization)
  Sender: FDA-Public Use
  Company Number: JP-009507513-1312JPN008043

PATIENT
  Age: 10 Year
  Sex: Female

DRUGS (1)
  1. MAXALT [Suspect]
     Indication: MIGRAINE
     Dosage: 10 MG/DAY, PRN
     Route: 048
     Dates: start: 20131204, end: 20131204

REACTIONS (2)
  - Abnormal behaviour [Recovered/Resolved]
  - Vomiting [Recovered/Resolved]
